FAERS Safety Report 23857191 (Version 1)
Quarter: 2024Q2

REPORT INFORMATION
  Report Type: Spontaneous
  Country: US (occurrence: US)
  Receive Date: 20240515
  Receipt Date: 20240515
  Transmission Date: 20240715
  Serious: No
  Sender: FDA-Public Use
  Company Number: US-AMGEN-USASP2024093389

PATIENT
  Sex: Male

DRUGS (2)
  1. BLINCYTO [Suspect]
     Active Substance: BLINATUMOMAB
     Indication: Acute lymphocytic leukaemia
     Dosage: 28 MICROGRAM, CONTINUING (INFUSED OVER A 28 DAY PERIOD NONSTOP )
     Route: 042
     Dates: start: 202404, end: 2024
  2. BLINCYTO [Suspect]
     Active Substance: BLINATUMOMAB
     Dosage: DOSE DECREASED
     Route: 042
     Dates: start: 2024

REACTIONS (1)
  - Hepatic enzyme increased [Unknown]

NARRATIVE: CASE EVENT DATE: 20240401
